FAERS Safety Report 13615418 (Version 1)
Quarter: 2017Q2

REPORT INFORMATION
  Report Type: Spontaneous
  Country: US (occurrence: US)
  Receive Date: 20170606
  Receipt Date: 20170606
  Transmission Date: 20170830
  Serious: No
  Sender: FDA-Public Use
  Company Number: US-PFIZER INC-2016305780

PATIENT
  Age: 45 Year
  Sex: Female
  Weight: 113.38 kg

DRUGS (3)
  1. LYRICA [Suspect]
     Active Substance: PREGABALIN
     Dosage: 200 MG, 1 CAPSULE  3X/DAY
     Route: 048
  2. LYRICA [Suspect]
     Active Substance: PREGABALIN
     Dosage: TOTAL 200 MG THREE TIMES A DAY AND 100 MG AT NIGHT
     Route: 048
     Dates: start: 201705, end: 20170530
  3. LYRICA [Suspect]
     Active Substance: PREGABALIN
     Indication: FOCAL DYSCOGNITIVE SEIZURES
     Dosage: 100 MG, 1X/DAY (1 CAPSULE Q 9PM)
     Route: 048

REACTIONS (3)
  - Feeling abnormal [Recovered/Resolved]
  - Dizziness [Recovered/Resolved]
  - Prescribed overdose [Unknown]

NARRATIVE: CASE EVENT DATE: 201705
